FAERS Safety Report 19289669 (Version 3)
Quarter: 2021Q2

REPORT INFORMATION
  Report Type: Report from Study
  Country: ES (occurrence: ES)
  Receive Date: 20210521
  Receipt Date: 20210604
  Transmission Date: 20210717
  Serious: Yes (Hospitalization)
  Sender: FDA-Public Use
  Company Number: ES-DECIPHERA PHARMACEUTICALS LLC-2021ES000377

PATIENT
  Age: 71 Year
  Sex: Female
  Weight: 43 kg

DRUGS (10)
  1. DCC?2618 [Suspect]
     Active Substance: RIPRETINIB
     Dosage: 150 MILLIGRAM, BID
     Route: 048
     Dates: start: 20201204
  2. ENALAPRIL [Concomitant]
     Active Substance: ENALAPRIL
     Indication: HYPERTENSION
     Dosage: 5 MILLIGRAM
     Route: 048
     Dates: start: 20200207
  3. PARACETAMOL [Concomitant]
     Active Substance: ACETAMINOPHEN
     Indication: PAIN PROPHYLAXIS
     Dosage: 1 GRAM, PRN
     Route: 048
     Dates: start: 20200408
  4. ASPIRIN [ACETYLSALICYLIC ACID] [Concomitant]
     Active Substance: ASPIRIN
     Indication: PAIN PROPHYLAXIS
     Dosage: 100 MILLIGRAM, PRN
     Route: 048
  5. NOLOTIL [METAMIZOLE MAGNESIUM] [Concomitant]
     Active Substance: METAMIZOLE MAGNESIUM
     Indication: ABDOMINAL PAIN
     Dosage: 575 MILLIGRAM, PRN
     Route: 048
     Dates: start: 20201217
  6. VASELIX [Concomitant]
     Indication: DRY SKIN
     Dosage: UNK, PRN
     Route: 061
     Dates: start: 20190507
  7. DCC?2618 [Suspect]
     Active Substance: RIPRETINIB
     Indication: GASTROINTESTINAL STROMAL TUMOUR
     Dosage: 150 MILLIGRAM, QD
     Route: 048
     Dates: start: 20180706, end: 20201203
  8. EUTIROX [Concomitant]
     Active Substance: LEVOTHYROXINE SODIUM
     Indication: HYPOTHYROIDISM
     Dosage: 25 MILLIGRAM, QD
     Route: 048
  9. ENANTYUM [Concomitant]
     Active Substance: DEXKETOPROFEN TROMETAMOL
     Indication: PAIN PROPHYLAXIS
     Dosage: 25 MILLIGRAM, PRN
     Route: 048
  10. FORTASEC [LOPERAMIDE] [Concomitant]
     Active Substance: LOPERAMIDE
     Indication: DIARRHOEA
     Dosage: 10 MILLIGRAM, PRN
     Route: 048
     Dates: start: 20201217

REACTIONS (1)
  - Anaemia [Recovered/Resolved]

NARRATIVE: CASE EVENT DATE: 20210329
